FAERS Safety Report 24157842 (Version 1)
Quarter: 2024Q3

REPORT INFORMATION
  Report Type: Report from Study
  Country: CA (occurrence: CA)
  Receive Date: 20240731
  Receipt Date: 20240731
  Transmission Date: 20241016
  Serious: Yes (Other)
  Sender: JOHNSON AND JOHNSON
  Company Number: CA-JNJFOC-20240772898

PATIENT
  Sex: Female

DRUGS (1)
  1. REMICADE [Suspect]
     Active Substance: INFLIXIMAB
     Indication: Crohn^s disease
     Route: 065
     Dates: end: 20240501

REACTIONS (3)
  - Paternal exposure during pregnancy [Not Recovered/Not Resolved]
  - Nausea [Unknown]
  - Morning sickness [Unknown]

NARRATIVE: CASE EVENT DATE: 20240101
